FAERS Safety Report 4388315-7 (Version None)
Quarter: 2004Q2

REPORT INFORMATION
  Report Type: 
  Country: None (occurrence: None)
  Receive Date: 20040625
  Receipt Date: 20040617
  Transmission Date: 20050107
  Serious: Yes (Death)
  Sender: FDA-Public Use
  Company Number: F01200401420

PATIENT
  Age: 55 Year
  Sex: Male

DRUGS (2)
  1. (OXALIPLATIN) - SOLUTION - 210 MG [Suspect]
     Indication: NON-SMALL CELL LUNG CANCER
     Dosage: 210 MG Q3W
     Route: 042
     Dates: start: 20040302, end: 20040302
  2. (GEMCITABINE) - SOLUTION - 2100 MG [Suspect]
     Dosage: 2100 MG ON DAY 1 AND DAY 8, Q3W
     Route: 042
     Dates: start: 20040302, end: 20040302

REACTIONS (9)
  - ANOREXIA [None]
  - FATIGUE [None]
  - MULTI-ORGAN FAILURE [None]
  - NAUSEA [None]
  - NEUROPATHY [None]
  - RENAL FAILURE ACUTE [None]
  - THROMBOCYTOPENIA [None]
  - VOMITING [None]
  - WEIGHT DECREASED [None]
